FAERS Safety Report 18357380 (Version 7)
Quarter: 2021Q1

REPORT INFORMATION
  Report Type: Report from Study
  Country: JP (occurrence: JP)
  Receive Date: 20201007
  Receipt Date: 20210210
  Transmission Date: 20210419
  Serious: Yes (Death, Life-Threatening, Hospitalization, Other)
  Sender: FDA-Public Use
  Company Number: JP-BRISTOL-MYERS SQUIBB COMPANY-BMS-2020-080846

PATIENT
  Age: 78 Year
  Sex: Female
  Weight: 35 kg

DRUGS (9)
  1. NIVOLUMAB [Suspect]
     Active Substance: NIVOLUMAB
     Dosage: 240 MILLIGRAM, Q3WK
     Route: 041
     Dates: start: 20200707, end: 20200707
  2. SOLU?MEDROL [Suspect]
     Active Substance: METHYLPREDNISOLONE SODIUM SUCCINATE
     Indication: ADRENAL INSUFFICIENCY
     Dosage: 1000 MILLIGRAM
     Route: 041
     Dates: start: 20200821, end: 20200826
  3. NIVOLUMAB [Suspect]
     Active Substance: NIVOLUMAB
     Dosage: 240 MILLIGRAM, Q3WK
     Route: 041
     Dates: start: 20200728, end: 20200728
  4. SOLU?CORTEF [Suspect]
     Active Substance: HYDROCORTISONE SODIUM SUCCINATE
     Indication: ADRENAL INSUFFICIENCY
     Dosage: 150 MILLIGRAM, QD
     Route: 041
     Dates: start: 20200820, end: 20200820
  5. SOLU?CORTEF [Suspect]
     Active Substance: HYDROCORTISONE SODIUM SUCCINATE
     Indication: DELIRIUM
     Dosage: 100 MILLIGRAM, QD
     Route: 041
     Dates: start: 20200821, end: 20200822
  6. IPILIMUMAB [Suspect]
     Active Substance: IPILIMUMAB
     Indication: METASTATIC RENAL CELL CARCINOMA
     Dosage: 35 MILLIGRAM, Q3WK
     Route: 041
     Dates: start: 20200616, end: 20200616
  7. IPILIMUMAB [Suspect]
     Active Substance: IPILIMUMAB
     Dosage: 35 MILLIGRAM, Q3WK
     Route: 041
     Dates: start: 20200707, end: 20200707
  8. IPILIMUMAB [Suspect]
     Active Substance: IPILIMUMAB
     Dosage: 35 MILLIGRAM, Q3WK
     Route: 041
     Dates: start: 20200728, end: 20200728
  9. NIVOLUMAB [Suspect]
     Active Substance: NIVOLUMAB
     Indication: METASTATIC RENAL CELL CARCINOMA
     Dosage: 240 MILLIGRAM, Q3WK
     Route: 041
     Dates: start: 20200616, end: 20200616

REACTIONS (11)
  - Thrombocytopenia [Not Recovered/Not Resolved]
  - Liver abscess [Recovering/Resolving]
  - Adrenal insufficiency [Not Recovered/Not Resolved]
  - Malignant neoplasm progression [Fatal]
  - Hepatic function abnormal [Recovering/Resolving]
  - Constipation [Recovering/Resolving]
  - Disseminated intravascular coagulation [Unknown]
  - Cancer pain [Not Recovered/Not Resolved]
  - Hypoproteinaemia [Not Recovered/Not Resolved]
  - Pneumocystis jirovecii pneumonia [Fatal]
  - Delirium [Recovering/Resolving]

NARRATIVE: CASE EVENT DATE: 20200617
